FAERS Safety Report 7851979-7 (Version None)
Quarter: 2011Q3

REPORT INFORMATION
  Report Type: 
  Country: None (occurrence: None)
  Receive Date: 20110912
  Receipt Date: 20110701
  Transmission Date: 20111222
  Serious: No
  Sender: FDA-Public Use
  Company Number: TH-2011-00239

PATIENT
  Age: 66 Year
  Sex: Male
  Weight: 98 kg

DRUGS (1)
  1. EGRIFTA [Suspect]
     Indication: LIPODYSTROPHY ACQUIRED

REACTIONS (1)
  - WEIGHT INCREASED [None]
